FAERS Safety Report 8024615-7 (Version None)
Quarter: 2012Q1

REPORT INFORMATION
  Report Type: 
  Country: None (occurrence: None)
  Receive Date: 20120103
  Receipt Date: 20111215
  Transmission Date: 20120608
  Serious: Yes (Other)
  Sender: FDA-Public Use
  Company Number: 1000026546

PATIENT
  Age: 90 Year
  Sex: Male

DRUGS (7)
  1. SPIRIVA (TIOTROPIUM BROMIDE) (18 MICROGRAM) (TIOTROPIUM BROMIDE) [Concomitant]
  2. ALBUTEROL [Concomitant]
  3. ONBREZ BREEZHALER (INDACATEROL) (150 MICROGRAM) (INDACATEROL) [Concomitant]
  4. FLUMIL (ACETYLCYSTEINE) (600 MILLIGRAM) (ACETYLCYSTEINE) [Concomitant]
  5. SEGURIL (FUROSEMIDE) (40 MILLIGRAM) (FUROSEMIDE) [Concomitant]
  6. ROFLUMILAST (ROFLUMILAST) (500 MICROGRAM, TABLETS) [Suspect]
     Indication: CHRONIC OBSTRUCTIVE PULMONARY DISEASE
     Dosage: 1 G, ORAL
     Route: 048
     Dates: start: 20111102, end: 20111105
  7. COZAAR (LOSARTAN POTASSIUM) (50 MILLIGRAM) (LOSARTAN POTASSIUM) [Concomitant]

REACTIONS (4)
  - HYPERHIDROSIS [None]
  - OLIGURIA [None]
  - BALANCE DISORDER [None]
  - DIZZINESS [None]
